FAERS Safety Report 5496784-4 (Version None)
Quarter: 2007Q4

REPORT INFORMATION
  Report Type: 
  Country: None (occurrence: None)
  Receive Date: 20071025
  Receipt Date: 20070815
  Transmission Date: 20080405
  Serious: No
  Sender: FDA-Public Use
  Company Number: A0670628A

PATIENT
  Age: 79 Year
  Sex: Male

DRUGS (5)
  1. ADVAIR DISKUS 100/50 [Suspect]
     Indication: ASTHMA
     Dosage: 1PUFF TWICE PER DAY
     Route: 055
     Dates: start: 20070808
  2. TOPROL-XL [Concomitant]
  3. DIOVAN [Concomitant]
  4. ISOSORBIDE MONONITRATE [Concomitant]
  5. PLAVIX [Concomitant]

REACTIONS (3)
  - AGEUSIA [None]
  - ANOREXIA [None]
  - HEADACHE [None]
